FAERS Safety Report 5912378-8 (Version None)
Quarter: 2008Q4

REPORT INFORMATION
  Report Type: 
  Country: None (occurrence: None)
  Receive Date: 20081007
  Receipt Date: 20081007
  Transmission Date: 20090506
  Serious: Yes (Life-Threatening, Hospitalization, Disabling)
  Sender: FDA-Public Use
  Company Number: None

PATIENT
  Age: 50 Year
  Sex: Male
  Weight: 119.296 kg

DRUGS (2)
  1. HEPARIN SODIUM [Suspect]
     Indication: ANTICOAGULANT THERAPY
     Dosage: 45,000 UNITS IV; 6 VIALS SIGNED OUT GRAFT HARVESTING
     Route: 042
     Dates: start: 20080125
  2. HEPARIN SODIUM [Suspect]

REACTIONS (13)
  - BACK PAIN [None]
  - BRACHIAL PLEXUS INJURY [None]
  - CARDIAC OUTPUT DECREASED [None]
  - COAGULOPATHY [None]
  - DEEP VEIN THROMBOSIS [None]
  - HYPOTENSION [None]
  - MEDIASTINAL DISORDER [None]
  - MUSCULAR WEAKNESS [None]
  - PAIN IN EXTREMITY [None]
  - POST PROCEDURAL COMPLICATION [None]
  - PRODUCT QUALITY ISSUE [None]
  - SWELLING [None]
  - VASCULAR GRAFT [None]
